FAERS Safety Report 5781776-8 (Version None)
Quarter: 2008Q2

REPORT INFORMATION
  Report Type: 
  Country: None (occurrence: None)
  Receive Date: 20080623
  Receipt Date: 20071018
  Transmission Date: 20081010
  Serious: No
  Sender: FDA-Public Use
  Company Number: US-ASTRAZENECA-2007UW24298

PATIENT
  Age: 64 Year
  Sex: Female
  Weight: 113.4 kg

DRUGS (5)
  1. RHINOCORT [Suspect]
     Indication: NASOPHARYNGITIS
     Dosage: 2 SPRAYS IN EACH NOSTRIL ONCE A DAY
     Route: 045
     Dates: start: 20050101, end: 20071017
  2. NEFEDI [Concomitant]
  3. BENECAR [Concomitant]
  4. DETROL [Concomitant]
  5. GENERIC MEDICATION [Concomitant]

REACTIONS (1)
  - HEADACHE [None]
